FAERS Safety Report 20825153 (Version 1)
Quarter: 2022Q2

REPORT INFORMATION
  Report Type: Spontaneous
  Country: ES (occurrence: ES)
  Receive Date: 20220513
  Receipt Date: 20220513
  Transmission Date: 20220721
  Serious: Yes (Hospitalization, Other)
  Sender: FDA-Public Use
  Company Number: ES-SUN PHARMACEUTICAL INDUSTRIES LTD-2022RR-336523

PATIENT
  Age: 23 Year
  Sex: Female

DRUGS (6)
  1. OLANZAPINE [Suspect]
     Active Substance: OLANZAPINE
     Indication: Mitochondrial encephalomyopathy
     Dosage: 20 MILLIGRAM
     Route: 065
  2. CARBAMAZEPINE [Suspect]
     Active Substance: CARBAMAZEPINE
     Indication: Mitochondrial encephalomyopathy
     Dosage: 1200 MILLIGRAM
     Route: 065
  3. DIAZEPAM [Suspect]
     Active Substance: DIAZEPAM
     Indication: Mitochondrial encephalomyopathy
     Dosage: UNK
     Route: 065
  4. HALOPERIDOL [Suspect]
     Active Substance: HALOPERIDOL
     Indication: Mitochondrial encephalomyopathy
     Dosage: 10 MILLIGRAM
     Route: 065
  5. CLONAZEPAM [Suspect]
     Active Substance: CLONAZEPAM
     Indication: Mitochondrial encephalomyopathy
     Dosage: UNK
     Route: 065
  6. PERPHENAZINE [Suspect]
     Active Substance: PERPHENAZINE
     Indication: Mitochondrial encephalomyopathy
     Dosage: 24 MILLIGRAM
     Route: 065

REACTIONS (3)
  - Drug intolerance [Unknown]
  - Therapeutic product effect incomplete [Unknown]
  - Extrapyramidal disorder [Unknown]
